FAERS Safety Report 7551248-9 (Version None)
Quarter: 2011Q2

REPORT INFORMATION
  Report Type: 
  Country: None (occurrence: None)
  Receive Date: 20110616
  Receipt Date: 20110603
  Transmission Date: 20111010
  Serious: Yes (Hospitalization)
  Sender: FDA-Public Use
  Company Number: PHHY2011US49323

PATIENT
  Sex: Female

DRUGS (1)
  1. FEMARA [Suspect]
     Dosage: 2.5 MG, QD
     Route: 048
     Dates: start: 20090501

REACTIONS (4)
  - DIVERTICULITIS [None]
  - MUSCULAR WEAKNESS [None]
  - LARGE INTESTINE PERFORATION [None]
  - WALKING AID USER [None]
